FAERS Safety Report 9092959 (Version 1)
Quarter: 2013Q1

REPORT INFORMATION
  Report Type: Spontaneous
  Country: FR (occurrence: FR)
  Receive Date: 20130201
  Receipt Date: 20130201
  Transmission Date: 20140127
  Serious: Yes (Other)
  Sender: FDA-Public Use
  Company Number: FR-PFIZER INC-2012302238

PATIENT
  Age: 60 Year
  Sex: Female
  Weight: 57 kg

DRUGS (1)
  1. LYRICA [Suspect]
     Indication: PARAESTHESIA
     Dosage: 25 MG IN MORNING, 50 MG IN EVENING
     Dates: start: 201207, end: 20121126

REACTIONS (5)
  - Visual field defect [Unknown]
  - Vision blurred [Recovered/Resolved]
  - Visual acuity reduced [Unknown]
  - Scotoma [Recovered/Resolved]
  - Optic nerve injury [Unknown]
